FAERS Safety Report 5585838-X (Version None)
Quarter: 2008Q1

REPORT INFORMATION
  Report Type: 
  Country: None (occurrence: None)
  Receive Date: 20080109
  Receipt Date: 20080103
  Transmission Date: 20080703
  Serious: Yes (Other)
  Sender: FDA-Public Use
  Company Number: US-PFIZER INC-2008001305

PATIENT
  Sex: Male
  Weight: 36 kg

DRUGS (3)
  1. GENOTROPIN [Suspect]
     Indication: HYPOPITUITARISM
     Route: 058
     Dates: start: 20030101, end: 20040201
  2. SYNTHROID [Concomitant]
  3. CORTEF [Concomitant]

REACTIONS (1)
  - PITUITARY TUMOUR BENIGN [None]
